FAERS Safety Report 13732388 (Version 1)
Quarter: 2017Q3

REPORT INFORMATION
  Report Type: Spontaneous
  Country: US (occurrence: US)
  Receive Date: 20170707
  Receipt Date: 20170707
  Transmission Date: 20171127
  Serious: No
  Sender: FDA-Public Use
  Company Number: US-SA-2017SA102899

PATIENT
  Age: 35 Year
  Sex: Male
  Weight: 69.39 kg

DRUGS (3)
  1. DUPIXENT [Suspect]
     Active Substance: DUPILUMAB
     Indication: DERMATITIS ATOPIC
     Route: 065
  2. DUPIXENT [Suspect]
     Active Substance: DUPILUMAB
     Indication: DERMATITIS ATOPIC
     Route: 065
     Dates: start: 20170602, end: 20170602
  3. IMURAN [Concomitant]
     Active Substance: AZATHIOPRINE
     Dosage: DOSE: AVERAGE 225MG. HE WOULD TAKE 5 IMURAN ONE DAY AND 4?ANOTHER DAY.
     Route: 065
     Dates: end: 20170602

REACTIONS (3)
  - Malaise [Not Recovered/Not Resolved]
  - Lymphadenopathy [Not Recovered/Not Resolved]
  - Arthralgia [Not Recovered/Not Resolved]

NARRATIVE: CASE EVENT DATE: 20170603
